FAERS Safety Report 8822299 (Version 3)
Quarter: 2013Q1

REPORT INFORMATION
  Report Type: Spontaneous
  Country: US (occurrence: US)
  Receive Date: 20121003
  Receipt Date: 20130315
  Transmission Date: 20140127
  Serious: Yes (Hospitalization)
  Sender: FDA-Public Use
  Company Number: US-BAYER-2012-100063

PATIENT
  Age: 23 Year
  Sex: Female
  Weight: 54.42 kg

DRUGS (2)
  1. YASMIN [Suspect]
     Indication: PREMENSTRUAL SYNDROME
     Dosage: UNK
     Dates: start: 20050101, end: 2008
  2. PREDNISONE [Concomitant]
     Indication: ADDISON^S DISEASE
     Dosage: UNK

REACTIONS (10)
  - Deep vein thrombosis [None]
  - Mesenteric vein thrombosis [None]
  - Thrombosis [None]
  - Pain [None]
  - Injury [None]
  - General physical health deterioration [None]
  - Emotional distress [None]
  - Anxiety [None]
  - Anhedonia [None]
  - Pain [None]
